FAERS Safety Report 10983430 (Version 2)
Quarter: 2015Q2

REPORT INFORMATION
  Report Type: Spontaneous
  Country: HU (occurrence: HU)
  Receive Date: 20150403
  Receipt Date: 20150407
  Transmission Date: 20150821
  Serious: Yes (Other)
  Sender: FDA-Public Use
  Company Number: HU-JNJFOC-20150322892

PATIENT
  Age: 32 Year
  Sex: Male
  Weight: 80 kg

DRUGS (2)
  1. SIMPONI [Suspect]
     Active Substance: GOLIMUMAB
     Indication: ANKYLOSING SPONDYLITIS
     Dosage: TOTAL 18 INJECTIONS RECEIVED
     Route: 058
     Dates: start: 20130521, end: 20141221
  2. MILURIT [Concomitant]
     Active Substance: ALLOPURINOL
     Indication: HYPERURICAEMIA
     Route: 065

REACTIONS (1)
  - Bladder transitional cell carcinoma [Recovering/Resolving]

NARRATIVE: CASE EVENT DATE: 20150209
